FAERS Safety Report 9333003 (Version 1)
Quarter: 2013Q2

REPORT INFORMATION
  Report Type: Spontaneous
  Country: FR (occurrence: FR)
  Receive Date: 20130606
  Receipt Date: 20130606
  Transmission Date: 20140414
  Serious: Yes (Hospitalization)
  Sender: FDA-Public Use
  Company Number: FR-PFIZER INC-2013165183

PATIENT
  Age: 87 Year
  Sex: Male

DRUGS (8)
  1. ZOXAN [Suspect]
     Indication: BENIGN PROSTATIC HYPERPLASIA
     Dosage: UNK
     Route: 048
  2. PREVISCAN [Suspect]
     Indication: ATRIAL FIBRILLATION
     Dosage: 10 MG FOR 2 DAYS THEN 5 MG FOR 1 DAY, CYCLIC
     Route: 048
  3. CLOPIDOGREL BIOGARAN [Suspect]
     Indication: ARTERIOSCLEROSIS CORONARY ARTERY
     Dosage: 75 MG, DAILY
     Route: 048
  4. COVERSYL [Concomitant]
  5. FUROSEMIDE [Concomitant]
  6. NEBIVOLOL [Concomitant]
  7. PRAVASTATIN [Concomitant]
  8. TARDYFERON [Concomitant]

REACTIONS (2)
  - Haemorrhagic anaemia [Recovered/Resolved]
  - Epistaxis [Recovered/Resolved]
